FAERS Safety Report 11016211 (Version 2)
Quarter: 2015Q2

REPORT INFORMATION
  Report Type: Spontaneous
  Country: US (occurrence: US)
  Receive Date: 20150412
  Receipt Date: 20150525
  Transmission Date: 20150821
  Serious: No
  Sender: FDA-Public Use
  Company Number: US-JNJFOC-20140402997

PATIENT
  Age: 65 Year
  Sex: Female
  Weight: 92.99 kg

DRUGS (13)
  1. METHOTREXATE [Concomitant]
     Active Substance: METHOTREXATE
     Indication: RHEUMATOID ARTHRITIS
     Route: 048
     Dates: start: 2014
  2. NORCO [Concomitant]
     Active Substance: ACETAMINOPHEN\HYDROCODONE BITARTRATE
     Indication: PAIN
     Route: 048
  3. CALCIUM [Concomitant]
     Active Substance: CALCIUM
     Route: 065
  4. FISH OIL [Concomitant]
     Active Substance: FISH OIL
     Route: 065
  5. MAGNESIUM [Concomitant]
     Active Substance: MAGNESIUM
     Route: 065
  6. TYROSINE [Concomitant]
     Active Substance: TYROSINE
     Route: 065
  7. PLEGINE [Concomitant]
     Active Substance: PHENDIMETRAZINE TARTRATE
     Route: 065
  8. XANAX [Concomitant]
     Active Substance: ALPRAZOLAM
     Route: 065
  9. RITALIN [Concomitant]
     Active Substance: METHYLPHENIDATE HYDROCHLORIDE
     Indication: ATTENTION DEFICIT/HYPERACTIVITY DISORDER
     Route: 048
  10. SIMPONI ARIA [Suspect]
     Active Substance: GOLIMUMAB
     Indication: RHEUMATOID ARTHRITIS
     Route: 042
     Dates: start: 20140124
  11. AMBIEN [Concomitant]
     Active Substance: ZOLPIDEM TARTRATE
     Indication: SLEEP DISORDER THERAPY
     Route: 048
     Dates: start: 2014
  12. FOLIC ACID. [Concomitant]
     Active Substance: FOLIC ACID
     Route: 048
  13. VITAMIN C W/VITAMIN D NOS/VITAMIN E [Concomitant]
     Route: 065

REACTIONS (1)
  - Rheumatoid arthritis [Not Recovered/Not Resolved]

NARRATIVE: CASE EVENT DATE: 201401
